FAERS Safety Report 16277524 (Version 2)
Quarter: 2019Q2

REPORT INFORMATION
  Report Type: Spontaneous
  Country: US (occurrence: US)
  Receive Date: 20190506
  Receipt Date: 20190601
  Transmission Date: 20190711
  Serious: No
  Sender: FDA-Public Use
  Company Number: PHEH2019US018931

PATIENT
  Age: 27 Year
  Sex: Female

DRUGS (6)
  1. VITAMIN D [Suspect]
     Active Substance: VITAMIN D NOS
     Indication: SUPPLEMENTATION THERAPY
     Dosage: 2000 U, UNK
     Route: 065
     Dates: start: 20150210
  2. GILENYA [Suspect]
     Active Substance: FINGOLIMOD HYDROCHLORIDE
     Indication: RELAPSING-REMITTING MULTIPLE SCLEROSIS
     Dosage: 0.5 MG, QD
     Route: 048
     Dates: start: 20190206, end: 20190423
  3. MULTI COMPLETE PRENATAL VITAMINS [Suspect]
     Active Substance: MINERALS\VITAMINS
     Indication: SUPPLEMENTATION THERAPY
     Route: 065
     Dates: start: 20190501
  4. ZOLOFT [Suspect]
     Active Substance: SERTRALINE HYDROCHLORIDE
     Indication: DEPRESSION
     Dosage: 50 MG, UNK
     Route: 065
     Dates: start: 20181203
  5. MIGRELIEF [Suspect]
     Active Substance: DIETARY SUPPLEMENT
     Indication: MIGRAINE
     Route: 065
     Dates: start: 20190501
  6. MIGRELIEF [Suspect]
     Active Substance: DIETARY SUPPLEMENT
     Indication: SUPPLEMENTATION THERAPY

REACTIONS (1)
  - Maternal exposure during pregnancy [Not Recovered/Not Resolved]
